FAERS Safety Report 10405356 (Version 1)
Quarter: 2014Q3

REPORT INFORMATION
  Report Type: Spontaneous
  Country: US (occurrence: None)
  Receive Date: 20140821
  Receipt Date: 20140821
  Transmission Date: 20150326
  Serious: Yes (Life-Threatening, Hospitalization)
  Sender: FDA-Public Use
  Company Number: None

PATIENT
  Age: 59 Year
  Sex: Female
  Weight: 81.65 kg

DRUGS (2)
  1. ERBITUX [Suspect]
     Active Substance: CETUXIMAB
     Indication: COLON CANCER
     Route: 042
     Dates: start: 20140818
  2. ERBITUX [Suspect]
     Active Substance: CETUXIMAB

REACTIONS (2)
  - Infusion related reaction [None]
  - Unresponsive to stimuli [None]

NARRATIVE: CASE EVENT DATE: 20140818
